FAERS Safety Report 6154365-3 (Version None)
Quarter: 2009Q2

REPORT INFORMATION
  Report Type: 
  Country: None (occurrence: None)
  Receive Date: 20090414
  Receipt Date: 20090408
  Transmission Date: 20091009
  Serious: Yes (Death, Hospitalization, Other)
  Sender: FDA-Public Use
  Company Number: PHHY2009JP09078

PATIENT
  Sex: Female
  Weight: 46 kg

DRUGS (4)
  1. ZOMETA [Suspect]
     Indication: METASTASES TO BONE
     Dosage: 4 MG / 4 WEEKS
     Route: 042
     Dates: start: 20070507, end: 20071011
  2. ANASTROZOLE [Concomitant]
     Indication: BREAST CANCER
     Dosage: UNK
     Route: 048
     Dates: start: 20070507, end: 20070604
  3. ANASTROZOLE [Concomitant]
     Indication: METASTASES TO BONE
  4. CHEMOTHERAPEUTICS NOS [Concomitant]

REACTIONS (10)
  - BONE DISORDER [None]
  - GENERAL PHYSICAL HEALTH DETERIORATION [None]
  - HYPERCALCAEMIA [None]
  - MALIGNANT NEOPLASM PROGRESSION [None]
  - METASTASES TO LIVER [None]
  - OSTEONECROSIS [None]
  - PATHOLOGICAL FRACTURE [None]
  - PYREXIA [None]
  - SWELLING FACE [None]
  - TOOTH EXTRACTION [None]
